FAERS Safety Report 17207481 (Version 4)
Quarter: 2021Q4

REPORT INFORMATION
  Report Type: Spontaneous
  Country: JP (occurrence: JP)
  Receive Date: 20191227
  Receipt Date: 20211014
  Transmission Date: 20220303
  Serious: Yes (Hospitalization)
  Sender: FDA-Public Use
  Company Number: NVSJ2019JP006136

PATIENT
  Age: 81 Year
  Sex: Male
  Weight: 58.4 kg

DRUGS (18)
  1. COSENTYX [Suspect]
     Active Substance: SECUKINUMAB
     Indication: Psoriasis
     Dosage: 300 MG
     Route: 058
     Dates: start: 20190909, end: 20191211
  2. OXAROL [Concomitant]
     Active Substance: MAXACALCITOL
     Indication: Psoriasis
     Dosage: 5 G
     Route: 065
     Dates: start: 20190827, end: 20191001
  3. BETAMETHASONE DIPROPIONATE [Concomitant]
     Active Substance: BETAMETHASONE DIPROPIONATE
     Indication: Psoriasis
     Dosage: 5 G
     Route: 062
     Dates: start: 20190716
  4. PARAFFIN [Concomitant]
     Active Substance: PARAFFIN
     Indication: Product used for unknown indication
     Dosage: UNK
     Route: 062
     Dates: start: 20190716
  5. LOCOID [Concomitant]
     Active Substance: HYDROCORTISONE BUTYRATE
     Indication: Product used for unknown indication
     Dosage: UNK
     Route: 062
     Dates: start: 20190716
  6. BETAMETHASONE DIPROPIONATE [Concomitant]
     Active Substance: BETAMETHASONE DIPROPIONATE
     Indication: Product used for unknown indication
     Dosage: UNK
     Route: 062
     Dates: start: 20190723
  7. ALLELOCK [Concomitant]
     Active Substance: OLOPATADINE HYDROCHLORIDE
     Indication: Product used for unknown indication
     Dosage: 5 MG, BID
     Route: 048
     Dates: start: 20190716
  8. PRANLUKAST [Concomitant]
     Active Substance: PRANLUKAST
     Indication: Product used for unknown indication
     Dosage: 225 MG, BID
     Route: 048
     Dates: start: 20190723
  9. DIFLUCORTOLONE VALERATE [Concomitant]
     Active Substance: DIFLUCORTOLONE VALERATE
     Indication: Product used for unknown indication
     Dosage: UNK
     Route: 062
     Dates: start: 20190806
  10. GLYCOSAMINOGLYCANS [Concomitant]
     Active Substance: GLYCOSAMINOGLYCANS
     Indication: Product used for unknown indication
     Dosage: UNK
     Route: 062
     Dates: start: 20190806
  11. RABEPRAZOLE [Concomitant]
     Active Substance: RABEPRAZOLE
     Indication: Product used for unknown indication
     Dosage: 10 MG, QD
     Route: 048
     Dates: start: 20200107
  12. VILDAGLIPTIN [Concomitant]
     Active Substance: VILDAGLIPTIN
     Indication: Product used for unknown indication
     Dosage: 50 MG, QD
     Route: 048
     Dates: start: 20200111
  13. MITIGLINIDE [Concomitant]
     Active Substance: MITIGLINIDE
     Indication: Product used for unknown indication
     Dosage: 10 MG, TID
     Route: 048
     Dates: start: 20191227
  14. INSULIN GLARGINE [Concomitant]
     Active Substance: INSULIN GLARGINE
     Indication: Product used for unknown indication
     Dosage: UNK
     Route: 062
  15. CANDESARTAN CILEXETIL [Concomitant]
     Active Substance: CANDESARTAN CILEXETIL
     Indication: Product used for unknown indication
     Dosage: UNK
     Route: 065
     Dates: end: 20191211
  16. JANUVIA [Concomitant]
     Active Substance: SITAGLIPTIN PHOSPHATE
     Indication: Product used for unknown indication
     Dosage: UNK
     Route: 065
     Dates: end: 20191211
  17. BASEN [Concomitant]
     Indication: Product used for unknown indication
     Dosage: UNK
     Route: 065
     Dates: end: 20191211
  18. MITIGLINIDE [Concomitant]
     Active Substance: MITIGLINIDE
     Indication: Product used for unknown indication
     Dosage: UNK
     Route: 065
     Dates: end: 20191211

REACTIONS (9)
  - Cellulitis [Recovering/Resolving]
  - Pyrexia [Recovering/Resolving]
  - Blood pressure decreased [Unknown]
  - Erythema [Unknown]
  - Pain [Unknown]
  - Abscess limb [Recovering/Resolving]
  - Cerebral infarction [Unknown]
  - Immobilisation syndrome [Unknown]
  - Blood calcium increased [Recovered/Resolved]

NARRATIVE: CASE EVENT DATE: 20191210
